FAERS Safety Report 5568333-3 (Version None)
Quarter: 2007Q4

REPORT INFORMATION
  Report Type: 
  Country: None (occurrence: None)
  Receive Date: 20071220
  Receipt Date: 20071220
  Transmission Date: 20080405
  Serious: Yes (Hospitalization)
  Sender: FDA-Public Use
  Company Number: PHHO2006CA19702

PATIENT
  Age: 77 Year
  Sex: Female
  Weight: 65.5 kg

DRUGS (5)
  1. ZOLEDRONIC ACID [Suspect]
     Indication: OSTEOPOROTIC FRACTURE
     Dosage: DOUBLE-BLINDED
     Dates: start: 20020624
  2. CALCIUM CARBONATE [Concomitant]
     Indication: OSTEOPOROTIC FRACTURE
  3. VITAMIN D [Concomitant]
     Indication: OSTEOPOROTIC FRACTURE
  4. CELEXA [Concomitant]
  5. LORAZEPAM [Concomitant]

REACTIONS (5)
  - CEREBELLAR ATAXIA [None]
  - CONCOMITANT DISEASE PROGRESSION [None]
  - DYSPNOEA [None]
  - FALL [None]
  - PNEUMONIA [None]
